FAERS Safety Report 5688918-3 (Version None)
Quarter: 2008Q1

REPORT INFORMATION
  Report Type: 
  Country: None (occurrence: None)
  Receive Date: 20080331
  Receipt Date: 20080317
  Transmission Date: 20080703
  Serious: Yes (Other)
  Sender: FDA-Public Use
  Company Number: US-ROCHE-511819

PATIENT
  Age: 24 Year
  Sex: Male

DRUGS (1)
  1. ACCUTANE [Suspect]
     Indication: ACNE
     Dosage: DATE WAS REPORTED AS THE SUMMER OF 2002. FORM:PILL
     Route: 065
     Dates: start: 20020101, end: 20020101

REACTIONS (6)
  - HEADACHE [None]
  - HOMICIDE [None]
  - MAJOR DEPRESSION [None]
  - PSYCHOTIC DISORDER [None]
  - SEXUAL DYSFUNCTION [None]
  - TINNITUS [None]
